FAERS Safety Report 5512415-9 (Version None)
Quarter: 2007Q4

REPORT INFORMATION
  Report Type: 
  Country: None (occurrence: None)
  Receive Date: 20071112
  Receipt Date: 20070521
  Transmission Date: 20080405
  Serious: No
  Sender: FDA-Public Use
  Company Number: A0548597A

PATIENT
  Age: 52 Year
  Sex: Male

DRUGS (4)
  1. AVANDAMET [Suspect]
     Dosage: 2TAB TWICE PER DAY
     Route: 048
  2. DIOVAN [Concomitant]
  3. PRILOSEC [Concomitant]
  4. LORAZEPAM [Concomitant]

REACTIONS (3)
  - BLOOD GLUCOSE INCREASED [None]
  - HAEMOGLOBIN INCREASED [None]
  - OEDEMA PERIPHERAL [None]
